FAERS Safety Report 7716258-7 (Version None)
Quarter: 2011Q3

REPORT INFORMATION
  Report Type: 
  Country: None (occurrence: None)
  Receive Date: 20110829
  Receipt Date: 20100920
  Transmission Date: 20111222
  Serious: Yes (Other)
  Sender: FDA-Public Use
  Company Number: PHHY2010TW41434

PATIENT
  Sex: Female

DRUGS (1)
  1. GLEEVEC [Suspect]
     Indication: GASTROINTESTINAL STROMAL TUMOUR
     Dosage: 400 MG, UNK
     Route: 048
     Dates: start: 20040812

REACTIONS (7)
  - HAEMORRHOIDS [None]
  - OESOPHAGEAL PAIN [None]
  - THROAT IRRITATION [None]
  - CHEST DISCOMFORT [None]
  - ANAEMIA [None]
  - FAECES DISCOLOURED [None]
  - ASTHENIA [None]
